FAERS Safety Report 14854913 (Version 1)
Quarter: 2018Q2

REPORT INFORMATION
  Report Type: Spontaneous
  Country: US (occurrence: US)
  Receive Date: 20180507
  Receipt Date: 20180507
  Transmission Date: 20180711
  Serious: No
  Sender: FDA-Public Use
  Company Number: US-ROCHE-1904555

PATIENT
  Sex: Female

DRUGS (1)
  1. ESBRIET [Suspect]
     Active Substance: PIRFENIDONE
     Indication: SENILE OSTEOPOROSIS
     Dosage: ONGOING: YES
     Route: 048
     Dates: start: 20170126

REACTIONS (3)
  - Vitreous floaters [Unknown]
  - Visual field defect [Unknown]
  - Visual impairment [Unknown]
